FAERS Safety Report 24654624 (Version 1)
Quarter: 2024Q4

REPORT INFORMATION
  Report Type: Spontaneous
  Country: BR (occurrence: BR)
  Receive Date: 20241122
  Receipt Date: 20241122
  Transmission Date: 20250114
  Serious: Yes (Hospitalization)
  Sender: NOVO NORDISK
  Company Number: BR-NOVOPROD-1116732

PATIENT
  Age: 85 Year
  Sex: Female
  Weight: 68 kg

DRUGS (2)
  1. NOVOLIN N [Suspect]
     Active Substance: INSULIN HUMAN
     Dosage: 38 IU, QD (16UI IN THE MORNING ON AN EMPTY STOMACH AND 22UI IN THE EVENING)
  2. NOVOLIN N [Suspect]
     Active Substance: INSULIN HUMAN
     Indication: Type 2 diabetes mellitus
     Dosage: 10 IU, QD (IN THE MORNING)
     Dates: start: 2019

REACTIONS (3)
  - Pulmonary embolism [Recovered/Resolved]
  - Gastrointestinal disorder [Recovered/Resolved]
  - Anaemia [Recovered/Resolved]

NARRATIVE: CASE EVENT DATE: 20220801
